FAERS Safety Report 6106035-5 (Version None)
Quarter: 2009Q1

REPORT INFORMATION
  Report Type: 
  Country: None (occurrence: None)
  Receive Date: 20090306
  Receipt Date: 20090306
  Transmission Date: 20090719
  Serious: Yes (Hospitalization)
  Sender: FDA-Public Use
  Company Number: None

PATIENT
  Age: 73 Year
  Sex: Female
  Weight: 58.0604 kg

DRUGS (1)
  1. NYSTATIN [Suspect]
     Indication: CANDIDIASIS
     Dosage: 5 ML QID PO ORAL ONCE ONLY
     Route: 048
     Dates: start: 20090213

REACTIONS (6)
  - ABNORMAL BEHAVIOUR [None]
  - COMA [None]
  - DROOLING [None]
  - FALL [None]
  - HYPERSENSITIVITY [None]
  - RESPIRATORY ARREST [None]
